FAERS Safety Report 12228240 (Version 1)
Quarter: 2016Q1

REPORT INFORMATION
  Report Type: Spontaneous
  Country: US (occurrence: None)
  Receive Date: 20160330
  Receipt Date: 20160330
  Transmission Date: 20160526
  Serious: Yes (Hospitalization)
  Sender: FDA-Public Use
  Company Number: None

PATIENT
  Age: 62 Year
  Sex: Female
  Weight: 121 kg

DRUGS (3)
  1. DEXAMETHASONE. [Suspect]
     Active Substance: DEXAMETHASONE
     Dates: end: 20160318
  2. VELCADE [Suspect]
     Active Substance: BORTEZOMIB
     Dates: end: 20160317
  3. LENALIDOMIDE (CC-5013) [Suspect]
     Active Substance: LENALIDOMIDE
     Dates: end: 20160320

REACTIONS (5)
  - Troponin I increased [None]
  - Cellulitis [None]
  - Acute kidney injury [None]
  - Anaemia [None]
  - Cardiac failure [None]

NARRATIVE: CASE EVENT DATE: 20160328
